FAERS Safety Report 13478725 (Version 1)
Quarter: 2017Q2

REPORT INFORMATION
  Report Type: Spontaneous
  Country: US (occurrence: US)
  Receive Date: 20170425
  Receipt Date: 20170425
  Transmission Date: 20170830
  Serious: Yes (Hospitalization)
  Sender: FDA-Public Use
  Company Number: US-PROCTER+GAMBLE-GS17045204

PATIENT
  Age: 58 Year
  Sex: Female

DRUGS (7)
  1. ROPINIROLE. [Concomitant]
     Active Substance: ROPINIROLE
     Dosage: UP TO 4MG DAILY
  2. METFORMIN [Concomitant]
     Active Substance: METFORMIN HYDROCHLORIDE
  3. AMITRIPTYLINE [Concomitant]
     Active Substance: AMITRIPTYLINE
  4. DIPHENHYDRAMINE HCL [Suspect]
     Active Substance: DIPHENHYDRAMINE HYDROCHLORIDE
     Indication: INSOMNIA
     Dosage: AT BEDTIME FOR 6 YEARS
     Route: 048
  5. ATORVASTATIN [Concomitant]
     Active Substance: ATORVASTATIN
  6. LEVODOPA [Concomitant]
     Active Substance: LEVODOPA
     Dosage: UP TO 450MG DAILY
  7. DIPHENHYDRAMINE HCL [Suspect]
     Active Substance: DIPHENHYDRAMINE HYDROCHLORIDE
     Indication: TREMOR

REACTIONS (20)
  - Body temperature increased [Unknown]
  - Drooling [Unknown]
  - Pain [Unknown]
  - Rhabdomyolysis [Unknown]
  - Oculogyric crisis [Unknown]
  - Torticollis [Unknown]
  - Blood creatine phosphokinase increased [Recovered/Resolved]
  - Dystonia [Recovering/Resolving]
  - Lacrimation increased [Unknown]
  - Muscle spasms [Unknown]
  - Hyperhidrosis [Unknown]
  - Tachypnoea [Unknown]
  - Oxygen saturation decreased [Unknown]
  - Musculoskeletal stiffness [Unknown]
  - Dyspnoea [Unknown]
  - Hypomagnesaemia [Unknown]
  - Withdrawal syndrome [Unknown]
  - Hypophosphataemia [Unknown]
  - Blood lactic acid increased [Unknown]
  - Incorrect drug administration duration [Unknown]
